FAERS Safety Report 6699755-5 (Version None)
Quarter: 2010Q2

REPORT INFORMATION
  Report Type: 
  Country: None (occurrence: None)
  Receive Date: 20100428
  Receipt Date: 20100415
  Transmission Date: 20101027
  Serious: No
  Sender: FDA-Public Use
  Company Number: US-BAYER-201019617NA

PATIENT
  Age: 38 Year
  Sex: Female

DRUGS (1)
  1. MIRENA [Suspect]
     Indication: MENORRHAGIA
     Dosage: FREQUENCY: CONTINUOUS
     Route: 015
     Dates: start: 20090129

REACTIONS (2)
  - COMPLICATION OF DEVICE REMOVAL [None]
  - VAGINAL HAEMORRHAGE [None]
